FAERS Safety Report 21974992 (Version 1)
Quarter: 2023Q1

REPORT INFORMATION
  Report Type: Report from Study
  Country: CA (occurrence: CA)
  Receive Date: 20230209
  Receipt Date: 20230209
  Transmission Date: 20230417
  Serious: Yes (Hospitalization, Other)
  Sender: FDA-Public Use
  Company Number: CA-CELLTRION INC.-2021CA016305

PATIENT

DRUGS (18)
  1. TRUXIMA [Suspect]
     Active Substance: RITUXIMAB-ABBS
     Indication: Rheumatoid arthritis
     Dosage: 1000 MG, INFUSION #2
     Route: 042
     Dates: start: 20211111
  2. TRUXIMA [Suspect]
     Active Substance: RITUXIMAB-ABBS
     Dosage: 1000 MG, INFUSION #3
     Route: 042
     Dates: start: 20211111
  3. TRUXIMA [Suspect]
     Active Substance: RITUXIMAB-ABBS
     Dosage: 1000 MG, INFUSION #2
     Route: 042
     Dates: start: 20211111
  4. TRUXIMA [Suspect]
     Active Substance: RITUXIMAB-ABBS
     Dosage: EVERY 6 MONTHS
     Dates: start: 20230119
  5. MYCOPHENOLIC ACID [Concomitant]
     Active Substance: MYCOPHENOLIC ACID
  6. PREDNISONE [Concomitant]
     Active Substance: PREDNISONE
  7. NIFEDIPINE [Concomitant]
     Active Substance: NIFEDIPINE
  8. TRESIBA [Concomitant]
     Active Substance: INSULIN DEGLUDEC
  9. EMPAGLIFLOZIN\METFORMIN HYDROCHLORIDE [Concomitant]
     Active Substance: EMPAGLIFLOZIN\METFORMIN HYDROCHLORIDE
  10. MIRTAZAPINE [Concomitant]
     Active Substance: MIRTAZAPINE
  11. DULOXETINE [Concomitant]
     Active Substance: DULOXETINE
  12. GABAPENTIN [Concomitant]
     Active Substance: GABAPENTIN
  13. NAPROXEN [Concomitant]
     Active Substance: NAPROXEN
  14. ATORVASTATIN [Concomitant]
     Active Substance: ATORVASTATIN
  15. TOLTERODINE [Concomitant]
     Active Substance: TOLTERODINE
  16. ACETAMINOPHEN [Concomitant]
     Active Substance: ACETAMINOPHEN
     Indication: Premedication
     Dosage: 650 MILLIGRAM
     Route: 042
  17. BENADRYL [Concomitant]
     Active Substance: DIPHENHYDRAMINE HYDROCHLORIDE
     Indication: Premedication
     Dosage: 50 MILLIGRAM
     Route: 042
  18. SOLU-MEDROL [Concomitant]
     Active Substance: METHYLPREDNISOLONE SODIUM SUCCINATE
     Indication: Premedication
     Dosage: 100 MILLIGRAM
     Route: 042

REACTIONS (5)
  - Arteriosclerosis [Unknown]
  - Stent placement [Unknown]
  - Asthma [Recovered/Resolved]
  - Rotator cuff repair [Unknown]
  - Fatigue [Recovered/Resolved]

NARRATIVE: CASE EVENT DATE: 20211111
